FAERS Safety Report 20299941 (Version 1)
Quarter: 2022Q1

REPORT INFORMATION
  Report Type: Spontaneous
  Country: NL (occurrence: NL)
  Receive Date: 20220105
  Receipt Date: 20220105
  Transmission Date: 20220423
  Serious: Yes (Hospitalization)
  Sender: FDA-Public Use
  Company Number: None

PATIENT
  Age: 68 Year
  Sex: Female
  Weight: 84 kg

DRUGS (2)
  1. BETAXOLOL [Suspect]
     Active Substance: BETAXOLOL
     Indication: Glaucoma
     Dosage: 1 DRP, Q12H (BETOPTICS EYE DROPS 2,5MG/ML, VIAL 5 ML,2X PER DAG1X)
     Route: 065
     Dates: start: 2020
  2. TRAVOPROST [Concomitant]
     Active Substance: TRAVOPROST
     Indication: Product used for unknown indication
     Dosage: UNK (OOGDRUPPELS, 40 ?G/ML MICROGRAM PER MILLILITER)
     Route: 065

REACTIONS (3)
  - Sleep apnoea syndrome [Not Recovered/Not Resolved]
  - Dyspnoea [Not Recovered/Not Resolved]
  - Nasal discomfort [Not Recovered/Not Resolved]

NARRATIVE: CASE EVENT DATE: 20210501
